FAERS Safety Report 9098295 (Version 3)
Quarter: 2013Q1

REPORT INFORMATION
  Report Type: Report from Study
  Country: US (occurrence: US)
  Receive Date: 20130213
  Receipt Date: 20130312
  Transmission Date: 20140127
  Serious: Yes (Hospitalization)
  Sender: FDA-Public Use
  Company Number: US-PFIZER INC-2013044943

PATIENT
  Age: 73 Year
  Sex: Male
  Weight: 80.5 kg

DRUGS (11)
  1. SUNITINIB MALATE [Suspect]
     Indication: RENAL CELL CARCINOMA
     Dosage: 50 MG, 1X/DAY
     Route: 048
     Dates: start: 20120221, end: 20130122
  2. DALTEPARIN SODIUM [Suspect]
     Indication: RENAL CELL CARCINOMA
     Dosage: 15000 IU, 1X/DAY
     Route: 058
     Dates: start: 20120326, end: 20130112
  3. DALTEPARIN SODIUM [Suspect]
     Dosage: 15000 IU, 1X/DAY
     Route: 058
     Dates: start: 20130115
  4. ALLOPURINOL [Concomitant]
     Indication: GOUT
     Dosage: 300 MG, 1X/DAY
     Route: 048
     Dates: start: 20111207
  5. SYNTHROID [Concomitant]
     Indication: HYPOTHYROIDISM
     Dosage: 50 MCG, 1X/DAY
     Route: 048
     Dates: start: 20121212
  6. LORTAB [Concomitant]
     Indication: OSTEOARTHRITIS
     Dosage: 7.5MG/ 500 MG AS NEEDED
     Route: 048
     Dates: start: 20111222
  7. VITAMIN D3 [Concomitant]
     Indication: SUPPLEMENTATION THERAPY
     Dosage: 1400 IU, 1X/DAY
     Route: 048
     Dates: start: 20120418
  8. TYLENOL EXTRA-STRENGTH [Concomitant]
     Indication: OSTEOARTHRITIS
     Dosage: 100 MG, QD PRN
     Route: 048
  9. CARDIZEM [Concomitant]
     Dosage: 120 MG, QD
  10. VITAMIN B12 [Concomitant]
     Indication: SUPPLEMENTATION THERAPY
     Dosage: UNK
     Route: 048
     Dates: start: 20121219
  11. CENTRUM SILVER [Concomitant]
     Indication: SUPPLEMENTATION THERAPY
     Dosage: UNK
     Route: 048
     Dates: start: 20111207

REACTIONS (1)
  - Atrial fibrillation [Recovered/Resolved]
